FAERS Safety Report 16356537 (Version 1)
Quarter: 2019Q2

REPORT INFORMATION
  Report Type: Report from Study
  Country: FR (occurrence: FR)
  Receive Date: 20190527
  Receipt Date: 20190527
  Transmission Date: 20190711
  Serious: Yes (Hospitalization, Other)
  Sender: FDA-Public Use
  Company Number: FR-ROCHE-2318811

PATIENT

DRUGS (1)
  1. TOCILIZUMAB. [Suspect]
     Active Substance: TOCILIZUMAB
     Indication: RHEUMATIC DISORDER
     Route: 065

REACTIONS (11)
  - Subclavian vein thrombosis [Unknown]
  - Thrombocytopenia [Unknown]
  - Epstein-Barr virus infection [Unknown]
  - Leukopenia [Unknown]
  - Haemophagocytic lymphohistiocytosis [Unknown]
  - Vena cava thrombosis [Unknown]
  - Varicella zoster virus infection [Unknown]
  - Product prescribing error [Unknown]
  - Hepatocellular injury [Unknown]
  - Bacterial infection [Unknown]
  - Gastrointestinal disorder [Unknown]
